FAERS Safety Report 5611169-5 (Version None)
Quarter: 2008Q1

REPORT INFORMATION
  Report Type: 
  Country: None (occurrence: None)
  Receive Date: 20080201
  Receipt Date: 20080125
  Transmission Date: 20080703
  Serious: Yes (Death)
  Sender: FDA-Public Use
  Company Number: MX-GENENTECH-253192

PATIENT
  Sex: Female
  Weight: 65.5 kg

DRUGS (6)
  1. BEVACIZUMAB [Suspect]
     Indication: BREAST CANCER
     Dosage: 960 MG, Q3W
     Route: 042
     Dates: start: 20070409
  2. CAPECITABINE [Suspect]
     Indication: BREAST CANCER
     Dosage: 3000 MG, QD
     Dates: start: 20070117
  3. OFLOXACIN [Concomitant]
     Indication: DRUG USE FOR UNKNOWN INDICATION
     Dates: start: 20071005, end: 20071011
  4. ANTIBIOTICS (NOT SPECIFIED) [Concomitant]
     Indication: PYREXIA
  5. FUROSEMIDE [Concomitant]
     Indication: DRUG USE FOR UNKNOWN INDICATION
     Route: 042
     Dates: start: 20071117
  6. ESPIRONOLACTONA [Concomitant]
     Indication: DRUG USE FOR UNKNOWN INDICATION
     Dosage: 150 MG, QD
     Dates: start: 20071117

REACTIONS (1)
  - LIVER DISORDER [None]
